FAERS Safety Report 4912914-4 (Version None)
Quarter: 2006Q1

REPORT INFORMATION
  Report Type: 
  Country: None (occurrence: None)
  Receive Date: 20060210
  Receipt Date: 20060130
  Transmission Date: 20060701
  Serious: Yes (Hospitalization)
  Sender: FDA-Public Use
  Company Number: 200610111BFR

PATIENT
  Age: 49 Year
  Sex: Male
  Weight: 67 kg

DRUGS (22)
  1. SORAFENIB [Suspect]
     Indication: METASTATIC RENAL CELL CARCINOMA
     Dosage: 400 MG, BID, ORAL; SEE IMAGE
     Route: 048
     Dates: start: 20050824, end: 20050918
  2. SORAFENIB [Suspect]
     Indication: METASTATIC RENAL CELL CARCINOMA
     Dosage: 400 MG, BID, ORAL; SEE IMAGE
     Route: 048
     Dates: start: 20050922, end: 20051018
  3. SORAFENIB [Suspect]
     Dosage: 400 MG, BID, ORAL
     Route: 048
     Dates: start: 20051019, end: 20051213
  4. SORAFENIB [Suspect]
     Dosage: 400 MG, BID, ORAL
     Route: 048
     Dates: start: 20051213, end: 20060130
  5. BENAZEPRIL HCL [Concomitant]
  6. ZOXAN (DOXAZOSINE) [Concomitant]
  7. TRAVATAN [Concomitant]
  8. MORPHINE SULFATE [Concomitant]
  9. FORLAX [Concomitant]
  10. SYMBICORT [Concomitant]
  11. NEURONTIN [Concomitant]
  12. OMEPRAZOLE [Concomitant]
  13. SKENAN [Concomitant]
  14. DEXERYL ^PIERRE FABRE^ [Concomitant]
  15. EOSINE [Concomitant]
  16. SOLUPRED [Concomitant]
  17. BI-PROFENID [Concomitant]
  18. NEXIUM [Concomitant]
  19. CLONAZEPAM [Concomitant]
  20. ACETAMINOPHEN [Concomitant]
  21. DUODERM [Concomitant]
  22. TPN [Concomitant]

REACTIONS (2)
  - BALANCE DISORDER [None]
  - FATIGUE [None]
